FAERS Safety Report 17851971 (Version 1)
Quarter: 2020Q2

REPORT INFORMATION
  Report Type: Spontaneous
  Country: US (occurrence: US)
  Receive Date: 20200602
  Receipt Date: 20200602
  Transmission Date: 20200714
  Serious: No
  Sender: FDA-Public Use
  Company Number: US-BAYER-2020-086216

PATIENT
  Sex: Male

DRUGS (6)
  1. ALKA-SELTZER PLUS DAY SEVERE COLD PLUS FLU [Suspect]
     Active Substance: ACETAMINOPHEN\DEXTROMETHORPHAN HYDROBROMIDE\GUAIFENESIN\PHENYLEPHRINE HYDROCHLORIDE
     Indication: NASOPHARYNGITIS
  2. ALKA-SELTZER PLUS COLD FORMULA [Suspect]
     Active Substance: ASPIRIN\CHLORPHENIRAMINE MALEATE\PHENYLEPHRINE BITARTRATE
     Indication: NASOPHARYNGITIS
  3. CLARITIN [Suspect]
     Active Substance: LORATADINE
     Indication: ALLERGIC RESPIRATORY SYMPTOM
     Dosage: UNK
     Route: 048
     Dates: start: 20200513
  4. ALKA-SELTZER PLUS COLD FORMULA [Suspect]
     Active Substance: ASPIRIN\CHLORPHENIRAMINE MALEATE\PHENYLEPHRINE BITARTRATE
     Indication: ALLERGIC RESPIRATORY SYMPTOM
     Route: 048
  5. ALKA-SELTZER PLUS DAY SEVERE COLD PLUS FLU [Suspect]
     Active Substance: ACETAMINOPHEN\DEXTROMETHORPHAN HYDROBROMIDE\GUAIFENESIN\PHENYLEPHRINE HYDROCHLORIDE
     Indication: ALLERGIC RESPIRATORY SYMPTOM
     Route: 048
  6. CLARITIN [Suspect]
     Active Substance: LORATADINE
     Indication: NASOPHARYNGITIS

REACTIONS (4)
  - Expired product administered [Unknown]
  - Drug ineffective [Unknown]
  - Wrong technique in product usage process [Unknown]
  - Therapeutic product effect delayed [Unknown]
